FAERS Safety Report 22127721 (Version 3)
Quarter: 2023Q4

REPORT INFORMATION
  Report Type: Spontaneous
  Country: DE (occurrence: DE)
  Receive Date: 20230323
  Receipt Date: 20231121
  Transmission Date: 20240110
  Serious: Yes (Other)
  Sender: FDA-Public Use
  Company Number: DE-ALKEM LABORATORIES LIMITED-DE-ALKEM-2023-02526

PATIENT
  Age: 35 Year
  Sex: Male
  Weight: 61 kg

DRUGS (11)
  1. LAMOTRIGINE [Suspect]
     Active Substance: LAMOTRIGINE
     Indication: Product used for unknown indication
     Dosage: UNK
     Route: 065
  2. LAMOTRIGINE [Suspect]
     Active Substance: LAMOTRIGINE
     Dosage: UNK, QD (EVERY 1 DAY), TABLET
     Route: 065
  3. LAMOTRIGINE [Suspect]
     Active Substance: LAMOTRIGINE
     Dosage: UNK, EVERY 2 DAY (TABLET)
     Route: 065
  4. LAMOTRIGINE [Suspect]
     Active Substance: LAMOTRIGINE
     Dosage: UNK, EVERY 2 DAY (TABLET)
     Route: 065
     Dates: start: 20210521
  5. LAMOTRIGINE [Suspect]
     Active Substance: LAMOTRIGINE
     Dosage: UNK, QD (EVERY 1 DAY) TABLET
     Route: 065
     Dates: start: 20210521
  6. LEVETIRACETAM [Suspect]
     Active Substance: LEVETIRACETAM
     Indication: Product used for unknown indication
     Dosage: UNK (LEVETIRACETAM ZENTIVA)
     Route: 065
  7. LACOSAMIDE [Suspect]
     Active Substance: LACOSAMIDE
     Indication: Product used for unknown indication
     Dosage: UNK (LACOSAMIDE UCB)
     Route: 065
  8. PRIMIDONE [Suspect]
     Active Substance: PRIMIDONE
     Indication: Product used for unknown indication
     Dosage: UNK
     Route: 065
  9. PRIMIDONE [Suspect]
     Active Substance: PRIMIDONE
     Dosage: UNK
     Route: 065
  10. VALPROIC ACID [Concomitant]
     Active Substance: VALPROIC ACID
     Indication: Product used for unknown indication
     Dosage: UNK (VALPROATE ERGENYL CHRONO 500)
     Route: 065
  11. VALPROIC ACID [Concomitant]
     Active Substance: VALPROIC ACID
     Dosage: UNK, (VALPROAT STADA 300)
     Route: 065

REACTIONS (11)
  - Petit mal epilepsy [Unknown]
  - Umbilical haemorrhage [Unknown]
  - Axillary pain [Recovering/Resolving]
  - Aggression [Recovering/Resolving]
  - Abscess [Unknown]
  - Hypersensitivity [Recovering/Resolving]
  - Ingrown hair [Unknown]
  - Loss of libido [Recovering/Resolving]
  - Pruritus [Recovering/Resolving]
  - Subcutaneous abscess [Recovering/Resolving]
  - Lip haemorrhage [Recovered/Resolved]
